FAERS Safety Report 5735468-1 (Version None)
Quarter: 2008Q2

REPORT INFORMATION
  Report Type: 
  Country: None (occurrence: None)
  Receive Date: 20080508
  Receipt Date: 20080505
  Transmission Date: 20081010
  Serious: Yes (Hospitalization)
  Sender: FDA-Public Use
  Company Number: 2008-02820

PATIENT
  Age: 53 Year
  Sex: Female

DRUGS (7)
  1. FLUOXETINE (WATSON LABORATORIES)(FLUXOETINE) CAPSULE [Suspect]
     Indication: FATIGUE
     Dosage: 40 MG, DAILY, ORAL
     Route: 048
  2. MODAFINIL [Suspect]
     Indication: FATIGUE
     Dosage: 200 MG, DAILY, ORAL
     Route: 048
  3. AMANTADINE HCL [Concomitant]
  4. OXYBUTYNIN CHLORIDE [Concomitant]
  5. INTERFERON BETA (INTERFERON BETA) [Concomitant]
  6. LEVOTHYROXINE SODIUM [Concomitant]
  7. BACLOFEN [Concomitant]

REACTIONS (2)
  - DELIRIUM [None]
  - DRUG WITHDRAWAL SYNDROME [None]
